FAERS Safety Report 4391096-4 (Version None)
Quarter: 2004Q2

REPORT INFORMATION
  Report Type: 
  Country: None (occurrence: None)
  Receive Date: 20040621
  Receipt Date: 20040408
  Transmission Date: 20050107
  Serious: Yes (Death)
  Sender: FDA-Public Use
  Company Number: USA-2003-0009448

PATIENT
  Age: 19 Year
  Sex: Male
  Weight: 83 kg

DRUGS (3)
  1. OXYCONTIN [Suspect]
     Dosage: UNK
  2. BENZODIAZEPINE DERIVATIVES [Suspect]
     Dosage: UNK
  3. CANNABIS (CANNABIS) [Suspect]
     Dosage: UNK

REACTIONS (2)
  - ACCIDENTAL OVERDOSE [None]
  - CARDIAC ARREST [None]
